FAERS Safety Report 16152806 (Version 4)
Quarter: 2021Q4

REPORT INFORMATION
  Report Type: Spontaneous
  Country: JP (occurrence: JP)
  Receive Date: 20190403
  Receipt Date: 20211222
  Transmission Date: 20220303
  Serious: Yes (Death, Hospitalization, Other)
  Sender: FDA-Public Use
  Company Number: JP-MSD-1903JPN001348J

PATIENT
  Age: 54 Year
  Sex: Female
  Weight: 41 kg

DRUGS (7)
  1. TEMODAL [Suspect]
     Active Substance: TEMOZOLOMIDE
     Indication: Fibroma
     Dosage: UNK
     Route: 048
  2. TEMODAL [Suspect]
     Active Substance: TEMOZOLOMIDE
     Dosage: 160 MILLIGRAM, QD
     Route: 048
     Dates: start: 20160607, end: 20170212
  3. AVASTIN [Suspect]
     Active Substance: BEVACIZUMAB
     Indication: Fibroma
     Dosage: UNK
     Route: 065
  4. AVASTIN [Suspect]
     Active Substance: BEVACIZUMAB
     Dosage: 233 MILLIGRAM, QD
     Route: 042
     Dates: start: 20160613, end: 20170213
  5. LYRICA [Concomitant]
     Active Substance: PREGABALIN
     Indication: Cancer pain
     Dosage: 150 MILLIGRAM, BID
     Route: 048
     Dates: start: 20160104, end: 201608
  6. TEGRETOL [Concomitant]
     Active Substance: CARBAMAZEPINE
     Indication: Cancer pain
     Dosage: 100 MILLIGRAM, TID
     Route: 048
     Dates: start: 20151228, end: 201901
  7. RAMOSETRON HYDROCHLORIDE [Concomitant]
     Active Substance: RAMOSETRON HYDROCHLORIDE
     Indication: Vomiting
     Dosage: 0.1 MILLIGRAM,BEFORE TAKING TEMODAL
     Route: 048
     Dates: start: 20160607, end: 20170212

REACTIONS (8)
  - Tumour haemorrhage [Unknown]
  - Neutropenia [Recovered/Resolved]
  - Platelet count decreased [Not Recovered/Not Resolved]
  - Myelosuppression [Unknown]
  - Disease progression [Fatal]
  - Tumour haemorrhage [Recovered/Resolved]
  - Rash [Recovering/Resolving]
  - Off label use [Unknown]

NARRATIVE: CASE EVENT DATE: 20160621
